FAERS Safety Report 20278744 (Version 1)
Quarter: 2022Q1

REPORT INFORMATION
  Report Type: Spontaneous
  Country: US (occurrence: US)
  Receive Date: 20220103
  Receipt Date: 20220103
  Transmission Date: 20220424
  Serious: No
  Sender: FDA-Public Use
  Company Number: US-TEVA-2021-US-1988749

PATIENT
  Age: 54 Year
  Sex: Male

DRUGS (1)
  1. AMOXICILLIN [Suspect]
     Active Substance: AMOXICILLIN
     Route: 065

REACTIONS (1)
  - Urticaria [Unknown]
